FAERS Safety Report 13567166 (Version 1)
Quarter: 2017Q2

REPORT INFORMATION
  Report Type: Spontaneous
  Country: US (occurrence: US)
  Receive Date: 20170522
  Receipt Date: 20170522
  Transmission Date: 20170830
  Serious: No
  Sender: FDA-Public Use
  Company Number: US-TEVA-748919ACC

PATIENT
  Sex: Female

DRUGS (1)
  1. CLONIDINE TDS [Suspect]
     Active Substance: CLONIDINE
     Dosage: FORM OF ADMINISTRATION: PATCH

REACTIONS (1)
  - Hypotension [Unknown]
